FAERS Safety Report 9626219 (Version 2)
Quarter: 2013Q4

REPORT INFORMATION
  Report Type: Spontaneous
  Country: US (occurrence: None)
  Receive Date: 20131007
  Receipt Date: 20131021
  Transmission Date: 20140711
  Serious: Yes (Hospitalization, Disabling)
  Sender: FDA-Public Use
  Company Number: P0614

PATIENT
  Age: 70 Year
  Sex: Male
  Weight: 82.3 kg

DRUGS (15)
  1. SIPULEUCEL-T [Suspect]
     Indication: PROSTATE CANCER METASTATIC
     Route: 042
     Dates: start: 20120914, end: 20120914
  2. CIMETIDINE (CIMETIDINE) [Concomitant]
  3. AMLODIPINE (AMLODIPINE) [Concomitant]
  4. ASPIRIN (ACETYLSALICYLIC ACID) [Concomitant]
  5. ATORVASTATIN (ATORVASTATIN) [Concomitant]
  6. CALCIUM WITH VITAMIN D (COLECALCIFEROL, CALCIUM CARBONATE) [Concomitant]
  7. CLARITIN D (PSEUDOEPHEDRINE SULFATE, LORATADINE) [Concomitant]
  8. LEVOTHYROXINE (LEVOTHYROXINE) [Concomitant]
  9. MULTI-VITAMIN (ERGOCALCIFEROL, ASCORBIC ACID, PYRIDOXINE HYDROCHLORIDE, THIAMINE HYDROCHLORIDE, RETINOL, RIBOFLAVIN, NICOTINAMIDE, CALCIUM PANTOTHENATE) [Concomitant]
  10. NASONEX (MOMETASONE FUROATE) [Concomitant]
  11. OMEPRAZOLE (OMEPRAZOLE) [Concomitant]
  12. PHAZYME (SIMETICONE) [Concomitant]
  13. ABIRATERONE ACETATE (ABIRATERONE ACETATE) [Concomitant]
  14. PREDNISONE (PREDNISONE) [Concomitant]
  15. ENZALUTAMIDE (ENZALUTAMIDE) [Concomitant]

REACTIONS (3)
  - Cerebrovascular accident [None]
  - Bone lesion [None]
  - Malignant neoplasm progression [None]
